FAERS Safety Report 18250489 (Version 2)
Quarter: 2021Q3

REPORT INFORMATION
  Report Type: Spontaneous
  Country: US (occurrence: US)
  Receive Date: 20200910
  Receipt Date: 20210716
  Transmission Date: 20211014
  Serious: Yes (Other)
  Sender: FDA-Public Use
  Company Number: US-SA-2020SA244669

PATIENT
  Age: 67 Year
  Sex: Male

DRUGS (1)
  1. ZANTAC [Suspect]
     Active Substance: RANITIDINE HYDROCHLORIDE
     Dosage: 75 MG, QW
     Dates: start: 199705, end: 201702

REACTIONS (2)
  - Oesophageal carcinoma [Unknown]
  - Gastric cancer stage II [Unknown]

NARRATIVE: CASE EVENT DATE: 20171001
